FAERS Safety Report 22832282 (Version 2)
Quarter: 2025Q2

REPORT INFORMATION
  Report Type: Spontaneous
  Country: US (occurrence: US)
  Receive Date: 20230817
  Receipt Date: 20250422
  Transmission Date: 20250716
  Serious: Yes (Other)
  Sender: PFIZER
  Company Number: US-MLMSERVICE-20230808-4458827-1

PATIENT
  Age: 40 Year
  Sex: Female

DRUGS (1)
  1. MORPHINE SULFATE [Suspect]
     Active Substance: MORPHINE SULFATE
     Indication: Abdominal pain

REACTIONS (4)
  - Hypertransaminasaemia [Unknown]
  - Pancreatitis acute [Unknown]
  - Sphincter of Oddi dysfunction [Unknown]
  - Drug ineffective [Unknown]
